FAERS Safety Report 9757576 (Version 2)
Quarter: 2013Q4

REPORT INFORMATION
  Report Type: Report from Study
  Country: US (occurrence: US)
  Receive Date: 20131216
  Receipt Date: 20131223
  Transmission Date: 20140711
  Serious: Yes (Death)
  Sender: FDA-Public Use
  Company Number: US-ORION CORPORATION ORION PHARMA-ENT 2013-0214

PATIENT
  Sex: Female
  Weight: 51.71 kg

DRUGS (1)
  1. COMTAN [Suspect]
     Route: 065

REACTIONS (1)
  - Death [Fatal]
